FAERS Safety Report 23326720 (Version 1)
Quarter: 2023Q4

REPORT INFORMATION
  Report Type: Spontaneous
  Country: US (occurrence: US)
  Receive Date: 20231221
  Receipt Date: 20231221
  Transmission Date: 20240109
  Serious: No
  Sender: FDA-Public Use
  Company Number: US-PFIZER INC-202300442870

PATIENT
  Age: 88 Year
  Sex: Female
  Weight: 86.18 kg

DRUGS (2)
  1. PAXLOVID [Suspect]
     Active Substance: NIRMATRELVIR\RITONAVIR
     Indication: COVID-19
     Dosage: [NIRMATRELVIR 300 MG]/[RITONAVIR 100 MG]; 2X/DAY
     Dates: start: 20231206, end: 20231210
  2. ASPIRIN [Concomitant]
     Active Substance: ASPIRIN
     Indication: Nasopharyngitis
     Dosage: UNK

REACTIONS (6)
  - Abdominal discomfort [Unknown]
  - Dysgeusia [Recovering/Resolving]
  - Flatulence [Recovered/Resolved with Sequelae]
  - Frequent bowel movements [Recovered/Resolved with Sequelae]
  - Haemorrhoidal haemorrhage [Recovered/Resolved with Sequelae]
  - Haemorrhoids [Recovered/Resolved with Sequelae]

NARRATIVE: CASE EVENT DATE: 20231207
